FAERS Safety Report 8439716-9 (Version None)
Quarter: 2012Q2

REPORT INFORMATION
  Report Type: 
  Country: None (occurrence: None)
  Receive Date: 20120611
  Receipt Date: 20120611
  Transmission Date: 20120825
  Serious: Yes (Other)
  Sender: FDA-Public Use
  Company Number: None

PATIENT
  Age: 38 Year
  Sex: Female
  Weight: 57.6068 kg

DRUGS (1)
  1. VENOFER [Suspect]
     Indication: ANAEMIA
     Dates: start: 20120530, end: 20120530

REACTIONS (5)
  - BLOOD PRESSURE DECREASED [None]
  - DIZZINESS [None]
  - LOSS OF CONSCIOUSNESS [None]
  - HEART RATE DECREASED [None]
  - COLD SWEAT [None]
